FAERS Safety Report 6413061-5 (Version None)
Quarter: 2009Q4

REPORT INFORMATION
  Report Type: 
  Country: None (occurrence: None)
  Receive Date: 20091023
  Receipt Date: 20091023
  Transmission Date: 20100525
  Serious: Yes (Life-Threatening, Other)
  Sender: FDA-Public Use
  Company Number: None

PATIENT
  Sex: Male
  Weight: 119.296 kg

DRUGS (1)
  1. TRAMADOL HCL [Suspect]
     Indication: PAIN
     Dates: start: 20081019, end: 20091019

REACTIONS (6)
  - DELIRIUM [None]
  - DEPRESSION [None]
  - DISORIENTATION [None]
  - FLUSHING [None]
  - NAUSEA [None]
  - VOMITING [None]
